FAERS Safety Report 25155327 (Version 1)
Quarter: 2025Q2

REPORT INFORMATION
  Report Type: Other
  Country: CA (occurrence: CA)
  Receive Date: 20250403
  Receipt Date: 20250403
  Transmission Date: 20250716
  Serious: Yes (Death)
  Sender: TOLMAR
  Company Number: CA-20250326-c5921e

PATIENT
  Sex: Male

DRUGS (2)
  1. ELIGARD [Suspect]
     Active Substance: LEUPROLIDE ACETATE
     Indication: Prostate cancer
     Dosage: 45 MG,EVERY 6 MONTHS
     Route: 058
     Dates: start: 20241015
  2. ELIGARD [Suspect]
     Active Substance: LEUPROLIDE ACETATE
     Dosage: 45 MG,EVERY 6 MONTHS
     Route: 058
     Dates: start: 20231114

REACTIONS (1)
  - Death [Fatal]
